FAERS Safety Report 25633340 (Version 1)
Quarter: 2025Q3

REPORT INFORMATION
  Report Type: Spontaneous
  Country: IN (occurrence: IN)
  Receive Date: 20250801
  Receipt Date: 20250801
  Transmission Date: 20251021
  Serious: Yes (Other)
  Sender: RANBAXY
  Company Number: IN-SUN PHARMACEUTICAL INDUSTRIES LTD-2025R1-520125

PATIENT
  Age: 59 Year
  Sex: Male

DRUGS (2)
  1. GEMCITABINE [Suspect]
     Active Substance: GEMCITABINE
     Indication: Chemotherapy
     Route: 065
  2. CISPLATIN [Suspect]
     Active Substance: CISPLATIN
     Indication: Chemotherapy
     Route: 065

REACTIONS (1)
  - Disease progression [Unknown]
